FAERS Safety Report 8775447 (Version 6)
Quarter: 2014Q2

REPORT INFORMATION
  Report Type: Report from Study
  Country: JP (occurrence: JP)
  Receive Date: 20120910
  Receipt Date: 20140423
  Transmission Date: 20141212
  Serious: Yes (Hospitalization, Other)
  Sender: FDA-Public Use
  Company Number: JP-VERTEX PHARMACEUTICAL INC.-AE-2012-003682

PATIENT
  Age: 65 Year
  Sex: Female

DRUGS (8)
  1. VX-950 (TELAPREVIR) [Suspect]
     Indication: CHRONIC HEPATITIS C
     Dosage: 2250 MG, QD
     Route: 048
     Dates: start: 20120117, end: 20120303
  2. REBETOL [Suspect]
     Indication: CHRONIC HEPATITIS C
     Dosage: 400 MG, QD
     Route: 048
     Dates: start: 20120117, end: 20120226
  3. REBETOL [Suspect]
     Dosage: 200 MG, QD
     Route: 048
     Dates: start: 20120227, end: 20120303
  4. PEGINTRON [Suspect]
     Indication: CHRONIC HEPATITIS C
     Dosage: 1.5 ?G/KG, QW
     Route: 058
     Dates: start: 20120117, end: 20120303
  5. URSO [Concomitant]
     Dosage: 600 MG, QD
     Route: 048
  6. OLMETEC [Concomitant]
     Dosage: 10 MG, QD
     Route: 048
  7. LANSOPRAZOLE [Concomitant]
     Dosage: 15 MG, QD
     Route: 048
  8. LENDEM [Concomitant]
     Dosage: 0.25 MG, QD
     Route: 048

REACTIONS (4)
  - Decreased appetite [Recovered/Resolved]
  - Weight decreased [Recovering/Resolving]
  - Vomiting [Recovered/Resolved]
  - Haemoglobin decreased [Recovered/Resolved]
